FAERS Safety Report 5360839-5 (Version None)
Quarter: 2007Q2

REPORT INFORMATION
  Report Type: 
  Country: None (occurrence: None)
  Receive Date: 20070618
  Receipt Date: 20070613
  Transmission Date: 20071010
  Serious: Yes (Hospitalization, Disabling)
  Sender: FDA-Public Use
  Company Number: GB-SHR-GB-2007-021591

PATIENT
  Age: 38 Year
  Sex: Female
  Weight: 69.9 kg

DRUGS (2)
  1. MIRENA [Suspect]
     Dosage: 20 A?G/DAY, CONT
     Route: 015
     Dates: start: 20060821, end: 20070401
  2. PRIMOLUT N [Suspect]
     Indication: MENORRHAGIA
     Dosage: 5 MG, UNK
     Route: 048
     Dates: start: 20060804

REACTIONS (6)
  - DYSPNOEA [None]
  - HYPOKINESIA [None]
  - NAUSEA [None]
  - OXYGEN SATURATION DECREASED [None]
  - TACHYCARDIA [None]
  - VOMITING [None]
